FAERS Safety Report 23387938 (Version 1)
Quarter: 2024Q1

REPORT INFORMATION
  Report Type: Spontaneous
  Country: US (occurrence: None)
  Receive Date: 20240109
  Receipt Date: 20240109
  Transmission Date: 20240410
  Serious: No
  Sender: FDA-Public Use
  Company Number: None

PATIENT
  Age: 53 Year
  Sex: Female
  Weight: 127.8 kg

DRUGS (1)
  1. OZEMPIC [Suspect]
     Active Substance: SEMAGLUTIDE
     Indication: Diabetes mellitus

REACTIONS (2)
  - Alopecia [None]
  - Skin wrinkling [None]
